FAERS Safety Report 9819365 (Version 1)
Quarter: 2014Q1

REPORT INFORMATION
  Report Type: Spontaneous
  Country: GB (occurrence: None)
  Receive Date: 20140113
  Receipt Date: 20140113
  Transmission Date: 20141002
  Serious: Yes (Other)
  Sender: FDA-Public Use
  Company Number: AUR-APL-2014-00066

PATIENT
  Age: 6 Year
  Sex: Female

DRUGS (2)
  1. CEFALEXIN [Suspect]
     Route: 048
     Dates: start: 20131217, end: 20131230
  2. CLARITHROMYCIN (CLARITHROMYCIN) [Concomitant]

REACTIONS (1)
  - Urticaria [None]
